FAERS Safety Report 8088462-2 (Version None)
Quarter: 2012Q1

REPORT INFORMATION
  Report Type: 
  Country: None (occurrence: None)
  Receive Date: 20120128
  Receipt Date: 20110415
  Transmission Date: 20120608
  Serious: No
  Sender: FDA-Public Use
  Company Number: US-ABBOTT-11P-163-0719862-00

PATIENT
  Age: 51 Year
  Sex: Female

DRUGS (5)
  1. HUMIRA [Suspect]
     Indication: PSORIASIS
     Dates: start: 20110103, end: 20110307
  2. LIPITOR [Concomitant]
     Indication: BLOOD CHOLESTEROL INCREASED
     Route: 048
     Dates: start: 20070101
  3. HUMIRA [Suspect]
     Dates: start: 20110307, end: 20110411
  4. ELMIRON [Concomitant]
     Indication: PRODUCT USED FOR UNKNOWN INDICATION
     Route: 048
     Dates: start: 20080101
  5. ZYRTEC [Concomitant]
     Indication: HYPERSENSITIVITY
     Dates: start: 19980101

REACTIONS (6)
  - PSORIASIS [None]
  - RASH PRURITIC [None]
  - DRUG INEFFECTIVE [None]
  - INCORRECT DOSE ADMINISTERED [None]
  - DEVICE MALFUNCTION [None]
  - WRONG TECHNIQUE IN DRUG USAGE PROCESS [None]
